FAERS Safety Report 5719569-X (Version None)
Quarter: 2008Q2

REPORT INFORMATION
  Report Type: 
  Country: None (occurrence: None)
  Receive Date: 20080428
  Receipt Date: 20080422
  Transmission Date: 20081010
  Serious: Yes (Death)
  Sender: FDA-Public Use
  Company Number: A0724140A

PATIENT
  Age: 71 Year
  Sex: Male

DRUGS (14)
  1. ADVAIR HFA [Suspect]
     Indication: DRUG USE FOR UNKNOWN INDICATION
     Route: 065
  2. ALBUTEROL [Concomitant]
  3. PANTOPRAZOLE SODIUM [Concomitant]
  4. POTASSIUM CHLORIDE [Concomitant]
  5. DILTIAZEM [Concomitant]
  6. FORADIL [Concomitant]
  7. FUROSEMIDE [Concomitant]
  8. PREDNISONE [Concomitant]
  9. PRO-AIR [Concomitant]
  10. PROMETHAZINE [Concomitant]
  11. PREDNISONE [Concomitant]
  12. FLOMAX [Concomitant]
  13. MEGESTROL ACETATE [Concomitant]
  14. LEVAQUIN [Concomitant]

REACTIONS (1)
  - DEATH [None]
